FAERS Safety Report 8296123-X (Version None)
Quarter: 2012Q2

REPORT INFORMATION
  Report Type: 
  Country: None (occurrence: None)
  Receive Date: 20120418
  Receipt Date: 20120412
  Transmission Date: 20120825
  Serious: Yes (Other)
  Sender: FDA-Public Use
  Company Number: AR-GLAXOSMITHKLINE-A0973952A

PATIENT
  Age: 34 Year
  Sex: Male

DRUGS (3)
  1. FLUTICASONE PROPIONATE/SALMETEROL [Suspect]
     Indication: ASTHMA
     Route: 055
     Dates: start: 20030101
  2. SINGULAIR [Concomitant]
  3. FLUTICASONE PROPIONATE [Suspect]
     Indication: ASTHMA

REACTIONS (1)
  - PNEUMONIA [None]
